FAERS Safety Report 8273453-9 (Version None)
Quarter: 2012Q2

REPORT INFORMATION
  Report Type: 
  Country: None (occurrence: None)
  Receive Date: 20120411
  Receipt Date: 20120402
  Transmission Date: 20120825
  Serious: Yes (Other)
  Sender: FDA-Public Use
  Company Number: US-NOVOPROD-348629

PATIENT
  Age: 39 Year
  Sex: Male
  Weight: 79.365 kg

DRUGS (2)
  1. NOVOLOG [Suspect]
     Indication: TYPE 2 DIABETES MELLITUS
     Dosage: SLIDING SCALE
     Route: 058
  2. LEVEMIR [Suspect]
     Indication: TYPE 2 DIABETES MELLITUS
     Dosage: 25 U IN AM, 20 U IN PM
     Route: 058

REACTIONS (3)
  - RETINOPATHY [None]
  - RENAL FAILURE [None]
  - CONDITION AGGRAVATED [None]
